FAERS Safety Report 4493900-8 (Version None)
Quarter: 2004Q4

REPORT INFORMATION
  Report Type: 
  Country: None (occurrence: None)
  Receive Date: 20041105
  Receipt Date: 20041025
  Transmission Date: 20050328
  Serious: Yes (Hospitalization)
  Sender: FDA-Public Use
  Company Number: ES-JNJFOC-20040901562

PATIENT
  Age: 56 Year
  Sex: Male

DRUGS (7)
  1. REMICADE [Suspect]
     Route: 042
  2. REMICADE [Suspect]
     Route: 042
  3. REMICADE [Suspect]
     Indication: SPONDYLOARTHROPATHY
     Dosage: RECEIVED 3 INFUSIONS.
     Route: 042
  4. METHOTREXATE [Concomitant]
     Route: 065
     Dates: start: 19990601
  5. INDOMETHACIN [Concomitant]
     Route: 065
  6. PANTOPRAZOLE [Concomitant]
     Route: 065
  7. CORTICOIDS [Concomitant]
     Route: 065
     Dates: start: 19970501

REACTIONS (1)
  - DISSEMINATED TUBERCULOSIS [None]
